FAERS Safety Report 17841603 (Version 3)
Quarter: 2020Q2

REPORT INFORMATION
  Report Type: Report from Study
  Country: HU (occurrence: HU)
  Receive Date: 20200529
  Receipt Date: 20200610
  Transmission Date: 20200714
  Serious: Yes (Hospitalization)
  Sender: FDA-Public Use
  Company Number: HU-EISAI MEDICAL RESEARCH-EC-2020-075213

PATIENT
  Age: 76 Year
  Sex: Male
  Weight: 88 kg

DRUGS (21)
  1. PEMBROLIZUMAB. [Suspect]
     Active Substance: PEMBROLIZUMAB
     Route: 042
     Dates: start: 20200603
  2. VEROSPIRON [Concomitant]
     Active Substance: SPIRONOLACTONE
     Dates: start: 201906
  3. TRITACE [Concomitant]
     Active Substance: RAMIPRIL
     Dates: start: 201902
  4. FURON [Concomitant]
     Active Substance: FUROSEMIDE
     Dates: start: 20190701
  5. NO SPA [Concomitant]
     Active Substance: DROTAVERINE HYDROCHLORIDE
     Dates: start: 20200520, end: 20200520
  6. LENVIMA [Suspect]
     Active Substance: LENVATINIB
     Indication: BLADDER CANCER
     Route: 048
     Dates: start: 20200325, end: 20200520
  7. ADEXOR [Concomitant]
     Dates: start: 20090630
  8. NOACID [Concomitant]
     Dates: start: 201003
  9. THROMBEXX [Concomitant]
     Dates: start: 201808
  10. HUMULIN N [Concomitant]
     Active Substance: INSULIN HUMAN
     Dates: start: 201910
  11. PEMBROLIZUMAB. [Suspect]
     Active Substance: PEMBROLIZUMAB
     Indication: TRANSITIONAL CELL CARCINOMA
     Route: 042
     Dates: start: 20200325, end: 20200415
  12. XARELTO [Concomitant]
     Active Substance: RIVAROXABAN
     Dates: start: 20190125
  13. LETROX [Concomitant]
     Active Substance: LEVOTHYROXINE SODIUM
     Dates: start: 20200415, end: 20200528
  14. MEGACE [Concomitant]
     Active Substance: MEGESTROL ACETATE
     Dates: start: 20200520
  15. XETER [Concomitant]
     Active Substance: ROSUVASTATIN CALCIUM
     Dates: start: 20190225
  16. CONCOR COR [Concomitant]
     Active Substance: BISOPROLOL FUMARATE
     Dates: start: 201003
  17. ALGOPYRIN [Concomitant]
     Active Substance: METAMIZOLE SODIUM
     Dates: start: 20200520, end: 20200520
  18. HUMULIN R [Concomitant]
     Active Substance: INSULIN HUMAN
     Dates: start: 20191031, end: 20200528
  19. PEMBROLIZUMAB. [Suspect]
     Active Substance: PEMBROLIZUMAB
     Route: 042
     Dates: start: 20200506, end: 20200506
  20. LENVIMA [Suspect]
     Active Substance: LENVATINIB
     Route: 048
     Dates: start: 20200603
  21. JARDIANCE [Concomitant]
     Active Substance: EMPAGLIFLOZIN
     Dates: start: 20191117

REACTIONS (1)
  - Cholecystitis [Recovered/Resolved]

NARRATIVE: CASE EVENT DATE: 20200521
